APPROVED DRUG PRODUCT: PHENTERMINE HYDROCHLORIDE
Active Ingredient: PHENTERMINE HYDROCHLORIDE
Strength: 30MG
Dosage Form/Route: CAPSULE;ORAL
Application: A040875 | Product #001 | TE Code: AA
Applicant: KVK TECH INC
Approved: Mar 21, 2008 | RLD: No | RS: No | Type: RX